FAERS Safety Report 8302130-0 (Version None)
Quarter: 2012Q2

REPORT INFORMATION
  Report Type: 
  Country: None (occurrence: None)
  Receive Date: 20120420
  Receipt Date: 20120410
  Transmission Date: 20120825
  Serious: Yes (Death)
  Sender: FDA-Public Use
  Company Number: NL-BRISTOL-MYERS SQUIBB COMPANY-16538001

PATIENT
  Age: 50 Year
  Sex: Male

DRUGS (7)
  1. DOCETAXEL [Suspect]
     Indication: NON-SMALL CELL LUNG CANCER
  2. FENTANYL-100 [Suspect]
  3. GABAPENTIN [Suspect]
  4. AMITRIPTYLINE HCL [Suspect]
  5. CISPLATIN [Suspect]
     Indication: NON-SMALL CELL LUNG CANCER
  6. OXYCODONE HCL [Suspect]
  7. ERLOTINIB HYDROCHLORIDE [Suspect]
     Indication: NON-SMALL CELL LUNG CANCER

REACTIONS (1)
  - INTERSTITIAL LUNG DISEASE [None]
